FAERS Safety Report 20527513 (Version 2)
Quarter: 2022Q2

REPORT INFORMATION
  Report Type: Report from Study
  Country: US (occurrence: US)
  Receive Date: 20220228
  Receipt Date: 20220429
  Transmission Date: 20220720
  Serious: Yes (Other)
  Sender: FDA-Public Use
  Company Number: US-BIOGEN-2021BI01042011

PATIENT
  Age: 49 Year
  Sex: Female

DRUGS (1)
  1. TYSABRI [Suspect]
     Active Substance: NATALIZUMAB
     Indication: Multiple sclerosis
     Route: 065
     Dates: start: 20190219, end: 202105

REACTIONS (8)
  - Blindness unilateral [Unknown]
  - Anal fistula infection [Unknown]
  - Anal fistula [Unknown]
  - Eye disorder [Unknown]
  - Cranial nerve disorder [Unknown]
  - Abscess [Unknown]
  - Dermatitis contact [Unknown]
  - Constipation [Unknown]

NARRATIVE: CASE EVENT DATE: 20210601
